FAERS Safety Report 10334085 (Version 1)
Quarter: 2014Q3

REPORT INFORMATION
  Report Type: Spontaneous
  Country: US (occurrence: None)
  Receive Date: 20140718
  Receipt Date: 20140718
  Transmission Date: 20150326
  Serious: Yes (Hospitalization)
  Sender: FDA-Public Use
  Company Number: 2014PL000054

PATIENT
  Age: 64 Year
  Sex: Female

DRUGS (13)
  1. HYDROXYCHLOROQUINE SULPHATE9HYDROXYCHLOROQUINE SULFATE) [Concomitant]
  2. NORTRIPTYLINE(NORTRIPTYLINE) [Concomitant]
  3. TRAMADOL(TRAMADOL) [Concomitant]
     Active Substance: TRAMADOL
  4. CYMBALTA [Concomitant]
     Active Substance: DULOXETINE HYDROCHLORIDE
  5. BENLYSTA [Suspect]
     Active Substance: BELIMUMAB
     Indication: SYSTEMIC LUPUS ERYTHEMATOSUS
     Route: 042
     Dates: start: 201206, end: 201305
  6. METHOTREXATE(METHOTREXATE) [Concomitant]
  7. FUROSEMIDE/00032601(FUROSEMIDE) [Concomitant]
  8. ATENOLOL(ATENOLOL) [Concomitant]
  9. BIOTENE/03475601/(FLUORINE, XYLITOL) [Concomitant]
  10. MULTIVITAMINS(ASCORBIC ACID, ERGOCALCIFEROL, FOLIC ACID, NICOTINAMIDE, PANTHENOL, RETINOL, RIBOFLAVIN,THIAMINE, HYDROCHLORIDE) [Concomitant]
  11. AZATHIOPRINE. [Suspect]
     Active Substance: AZATHIOPRINE
     Indication: SYSTEMIC LUPUS ERYTHEMATOSUS
     Route: 048
     Dates: start: 201304, end: 201305
  12. PRASTERONE(PRASTERONE) [Concomitant]
  13. DEXAMETHASONE(DEXAMETHASONE) [Concomitant]

REACTIONS (3)
  - Infection [None]
  - Wound [None]
  - Impaired healing [None]

NARRATIVE: CASE EVENT DATE: 201305
